FAERS Safety Report 8241516-X (Version None)
Quarter: 2012Q1

REPORT INFORMATION
  Report Type: 
  Country: None (occurrence: None)
  Receive Date: 20120328
  Receipt Date: 20120316
  Transmission Date: 20120608
  Serious: Yes (Hospitalization)
  Sender: FDA-Public Use
  Company Number: SE-ROCHE-1050043

PATIENT
  Sex: Female
  Weight: 75 kg

DRUGS (13)
  1. FILGRASTIM [Concomitant]
     Indication: LEUKOPENIA
     Route: 058
  2. PEGINTERFERON ALFA-2A [Suspect]
     Indication: HEPATITIS C
     Route: 058
     Dates: start: 20110601
  3. SODIUM BICARBONATE [Concomitant]
     Indication: ACIDOSIS
     Dosage: 100-200 ML
     Route: 042
  4. TACROLIMUS [Concomitant]
     Indication: IMMUNOSUPPRESSION
     Route: 048
     Dates: start: 20100217
  5. COPEGUS [Suspect]
     Indication: HEPATITIS C
     Route: 048
     Dates: start: 20110601
  6. OMEPRAZOLE [Concomitant]
     Route: 048
     Dates: start: 20100711
  7. OXYCONTIN [Concomitant]
     Indication: PAIN
     Dates: start: 20110801
  8. OXYCODONE HCL [Concomitant]
     Indication: PAIN
     Dates: start: 20110801
  9. HERACILLIN [Concomitant]
     Indication: ABSCESS
     Route: 048
     Dates: start: 20110722
  10. CALCIUM CARBONATE [Concomitant]
     Dates: start: 20110711
  11. KALEORID [Concomitant]
     Indication: BLOOD POTASSIUM DECREASED
     Dosage: 1.5-3 G
     Route: 048
  12. ARANESP [Concomitant]
     Indication: ANAEMIA
     Route: 058
     Dates: start: 20110518
  13. ZOLOFT [Concomitant]
     Indication: DEPRESSION
     Route: 048
     Dates: start: 19900101

REACTIONS (3)
  - SEPSIS [None]
  - EXTRADURAL ABSCESS [None]
  - ANAEMIA [None]
